FAERS Safety Report 12731541 (Version 1)
Quarter: 2016Q3

REPORT INFORMATION
  Report Type: Spontaneous
  Country: US (occurrence: US)
  Receive Date: 20160912
  Receipt Date: 20160912
  Transmission Date: 20161109
  Serious: No
  Sender: FDA-Public Use
  Company Number: US-TEVA-688625USA

PATIENT
  Sex: Female

DRUGS (3)
  1. DULOXETINE. [Suspect]
     Active Substance: DULOXETINE
     Indication: ANXIETY
     Route: 065
     Dates: start: 2016
  2. DULOXETINE. [Suspect]
     Active Substance: DULOXETINE
     Indication: DEPRESSION
     Route: 065
     Dates: start: 2016
  3. DULOXETINE. [Suspect]
     Active Substance: DULOXETINE
     Indication: SPINAL PAIN
     Route: 065
     Dates: start: 201602

REACTIONS (4)
  - Pain [Not Recovered/Not Resolved]
  - Tremor [Recovered/Resolved]
  - Product use issue [Unknown]
  - Drug ineffective [Unknown]
